FAERS Safety Report 5168766-3 (Version None)
Quarter: 2006Q4

REPORT INFORMATION
  Report Type: 
  Country: None (occurrence: None)
  Receive Date: 20061211
  Receipt Date: 20061017
  Transmission Date: 20070319
  Serious: Yes (Hospitalization)
  Sender: FDA-Public Use
  Company Number: PHEH2006US13090

PATIENT
  Age: 60 Year
  Sex: Female
  Weight: 56.689 kg

DRUGS (4)
  1. COUMADIN [Concomitant]
     Dosage: UNK, UNK
     Dates: end: 20061002
  2. PLAVIX [Concomitant]
     Dosage: UNK, UNK
     Dates: end: 20061002
  3. EXJADE [Suspect]
     Indication: IRON OVERLOAD
     Dosage: 1000 MG, QD
     Route: 048
  4. EXJADE [Suspect]

REACTIONS (11)
  - ABDOMINAL ADHESIONS [None]
  - ABDOMINAL PAIN [None]
  - ANAEMIA [None]
  - CONFUSION POSTOPERATIVE [None]
  - CONFUSIONAL STATE [None]
  - EXPLORATIVE LAPAROTOMY [None]
  - GASTROINTESTINAL TUBE INSERTION [None]
  - NAUSEA [None]
  - SICKLE CELL ANAEMIA WITH CRISIS [None]
  - SMALL INTESTINAL OBSTRUCTION [None]
  - VOMITING [None]
